FAERS Safety Report 21327174 (Version 1)
Quarter: 2022Q3

REPORT INFORMATION
  Report Type: Spontaneous
  Country: US (occurrence: None)
  Receive Date: 20220912
  Receipt Date: 20220912
  Transmission Date: 20221026
  Serious: No
  Sender: FDA-Public Use
  Company Number: None

PATIENT
  Sex: Female

DRUGS (1)
  1. RINVOQ [Suspect]
     Active Substance: UPADACITINIB
     Indication: Idiopathic pulmonary fibrosis
     Dosage: 15MG DAILY BY MOUTH?
     Route: 048
     Dates: start: 202208

REACTIONS (2)
  - Joint swelling [None]
  - Arthralgia [None]
